FAERS Safety Report 12084686 (Version 1)
Quarter: 2016Q1

REPORT INFORMATION
  Report Type: Spontaneous
  Country: US (occurrence: US)
  Receive Date: 20160217
  Receipt Date: 20160217
  Transmission Date: 20160526
  Serious: No
  Sender: FDA-Public Use
  Company Number: GXBR2015US000920

PATIENT
  Sex: Female
  Weight: 70.3 kg

DRUGS (2)
  1. IMIQUIMOD. [Suspect]
     Active Substance: IMIQUIMOD
     Indication: PRECANCEROUS CELLS PRESENT
     Dosage: 1 DF, TIW
     Route: 061
     Dates: start: 20150209, end: 20150302
  2. ALENDRONATE [Concomitant]
     Active Substance: ALENDRONATE SODIUM
     Indication: OSTEOPENIA
     Dosage: UNK DF, UNK

REACTIONS (5)
  - Application site papules [Unknown]
  - Drug prescribing error [Unknown]
  - Application site ulcer [Unknown]
  - Application site vesicles [Unknown]
  - Application site pruritus [Unknown]
